FAERS Safety Report 4371927-4 (Version None)
Quarter: 2004Q2

REPORT INFORMATION
  Report Type: 
  Country: None (occurrence: None)
  Receive Date: 20040603
  Receipt Date: 20040603
  Transmission Date: 20050107
  Serious: Yes (Hospitalization, Other)
  Sender: FDA-Public Use
  Company Number: None

PATIENT
  Sex: Male
  Weight: 70.7611 kg

DRUGS (3)
  1. ACIPHEX [Suspect]
     Indication: HELICOBACTER GASTRITIS
     Dosage: 20 MG QD PO
     Route: 048
     Dates: start: 20040514, end: 20040520
  2. AMOXIL [Concomitant]
  3. BIAXIN [Concomitant]

REACTIONS (7)
  - ANXIETY [None]
  - ASTHENIA [None]
  - CHEST PAIN [None]
  - DIZZINESS [None]
  - DYSPNOEA [None]
  - HYPOAESTHESIA [None]
  - PARAESTHESIA [None]
